FAERS Safety Report 8528755-5 (Version None)
Quarter: 2012Q3

REPORT INFORMATION
  Report Type: 
  Country: None (occurrence: None)
  Receive Date: 20120723
  Receipt Date: 20120713
  Transmission Date: 20120928
  Serious: No
  Sender: FDA-Public Use
  Company Number: US-009507513-1207USA004568

PATIENT

DRUGS (1)
  1. NUVARING [Suspect]
     Indication: CONTRACEPTION
     Dosage: UNK, QM
     Dates: start: 20120628, end: 20120709

REACTIONS (4)
  - NAUSEA [None]
  - METRORRHAGIA [None]
  - DEPRESSION [None]
  - ABDOMINAL PAIN [None]
